FAERS Safety Report 8301164 (Version 3)
Quarter: 2017Q4

REPORT INFORMATION
  Report Type: Spontaneous
  Country: US (occurrence: US)
  Receive Date: 20111219
  Receipt Date: 20171026
  Transmission Date: 20180321
  Serious: Yes (Hospitalization, Other)
  Sender: FDA-Public Use
  Company Number: US-ASTRAZENECA-2011SE53891

PATIENT
  Age: 48 Year
  Sex: Female
  Weight: 77.6 kg

DRUGS (13)
  1. OMEPRAZOLE. [Concomitant]
     Active Substance: OMEPRAZOLE
     Indication: DYSPEPSIA
  2. SYNTHROID [Suspect]
     Active Substance: LEVOTHYROXINE SODIUM
     Indication: THYROID DISORDER
     Route: 048
     Dates: start: 1974
  3. COENZYME A [Concomitant]
     Active Substance: COENZYME A
     Indication: ADVERSE DRUG REACTION
  4. PLAVIX [Concomitant]
     Active Substance: CLOPIDOGREL BISULFATE
     Dates: start: 2009, end: 2010
  5. ATENOLOL. [Suspect]
     Active Substance: ATENOLOL
     Indication: CORONARY ARTERY DISEASE
     Route: 048
     Dates: start: 2009, end: 2009
  6. SIMVASTATIN. [Suspect]
     Active Substance: SIMVASTATIN
     Indication: BLOOD CHOLESTEROL INCREASED
     Route: 065
     Dates: start: 2009, end: 2009
  7. ATENOLOL. [Suspect]
     Active Substance: ATENOLOL
     Indication: CORONARY ARTERY DISEASE
     Route: 048
     Dates: start: 2009, end: 2009
  8. CRESTOR [Suspect]
     Active Substance: ROSUVASTATIN CALCIUM
     Indication: BLOOD CHOLESTEROL INCREASED
     Route: 048
     Dates: start: 2009
  9. CRESTOR [Suspect]
     Active Substance: ROSUVASTATIN CALCIUM
     Indication: BLOOD CHOLESTEROL INCREASED
     Route: 048
  10. OMEPRAZOLE. [Concomitant]
     Active Substance: OMEPRAZOLE
     Indication: GASTRIC DISORDER
  11. ASPIRIN. [Concomitant]
     Active Substance: ASPIRIN
     Indication: CORONARY ARTERY DISEASE
     Dates: start: 2009
  12. COQ [Concomitant]
     Indication: CORONARY ARTERY DISEASE
  13. SYNTHROID [Suspect]
     Active Substance: LEVOTHYROXINE SODIUM
     Indication: BASEDOW^S DISEASE
     Route: 048
     Dates: start: 1974

REACTIONS (23)
  - Musculoskeletal pain [Recovered/Resolved]
  - Pallor [Recovered/Resolved]
  - Heart rate decreased [Recovered/Resolved]
  - Eczema [Unknown]
  - Myalgia [Recovered/Resolved]
  - Vision blurred [Unknown]
  - Muscle spasms [Recovered/Resolved]
  - Cardiac disorder [Unknown]
  - Irritable bowel syndrome [Unknown]
  - Coronary artery occlusion [Not Recovered/Not Resolved]
  - Wrong technique in product usage process [Unknown]
  - Left ventricular failure [Not Recovered/Not Resolved]
  - Mobility decreased [Recovered/Resolved]
  - Blood creatine phosphokinase increased [Recovered/Resolved]
  - Diarrhoea [Recovered/Resolved]
  - Amnesia [Recovered/Resolved]
  - Drug dose omission [Unknown]
  - Feeling abnormal [Recovered/Resolved]
  - Drug prescribing error [Unknown]
  - Myocardial infarction [Unknown]
  - Cardiospasm [Recovered/Resolved]
  - Atrial fibrillation [Not Recovered/Not Resolved]
  - Viral infection [Recovered/Resolved]

NARRATIVE: CASE EVENT DATE: 2009
